FAERS Safety Report 23846249 (Version 2)
Quarter: 2024Q3

REPORT INFORMATION
  Report Type: Report from Study
  Country: EG (occurrence: EG)
  Receive Date: 20240512
  Receipt Date: 20240725
  Transmission Date: 20241017
  Serious: No
  Sender: SANDOZ
  Company Number: EG-SANDOZ-SDZ2024EG047563

PATIENT
  Sex: Male

DRUGS (1)
  1. OMNITROPE [Suspect]
     Active Substance: SOMATROPIN
     Indication: Growth hormone deficiency
     Dosage: UNK
     Route: 058

REACTIONS (3)
  - Drug dose omission by device [Unknown]
  - Device mechanical issue [Unknown]
  - Product availability issue [Unknown]
